FAERS Safety Report 25853662 (Version 6)
Quarter: 2025Q4

REPORT INFORMATION
  Report Type: Spontaneous
  Country: US (occurrence: US)
  Receive Date: 20250926
  Receipt Date: 20251105
  Transmission Date: 20260117
  Serious: No
  Sender: PFIZER
  Company Number: US-PFIZER INC-202400319656

PATIENT
  Age: 79 Year
  Sex: Female

DRUGS (2)
  1. GENOTROPIN [Suspect]
     Active Substance: SOMATROPIN
     Indication: Hypopituitarism
     Dosage: 0.5 MG, DAILY(7 DAYS/WEEK, DOSE IN INCREMENTS OF 0.1 MG, PEN NEEDLE GAUGE: 29)
  2. GENOTROPIN [Suspect]
     Active Substance: SOMATROPIN
     Indication: Growth hormone deficiency

REACTIONS (3)
  - Product prescribing error [Unknown]
  - Liquid product physical issue [Unknown]
  - Device issue [Unknown]
